FAERS Safety Report 9665593 (Version 1)
Quarter: 2013Q4

REPORT INFORMATION
  Report Type: Spontaneous
  Country: US (occurrence: None)
  Receive Date: 20131101
  Receipt Date: 20131101
  Transmission Date: 20140711
  Serious: Yes (Disabling)
  Sender: FDA-Public Use
  Company Number: None

PATIENT
  Age: 69 Year
  Sex: Male
  Weight: 83.92 kg

DRUGS (5)
  1. MULTIVITAMIN [Suspect]
     Indication: NUTRITIONAL SUPPLEMENTATION
     Dosage: 1 MULTIVITAMIN, ONCE DAILY BY MOUTH WITH MEAL
     Route: 048
     Dates: start: 20131030, end: 20131030
  2. ENALAPRIL [Concomitant]
  3. DOXACOSIN [Concomitant]
  4. ATORVASTATIN [Concomitant]
  5. OMEGA-3 [Concomitant]

REACTIONS (1)
  - Nausea [None]
